FAERS Safety Report 5998985-5 (Version None)
Quarter: 2008Q4

REPORT INFORMATION
  Report Type: 
  Country: None (occurrence: None)
  Receive Date: 20081213
  Receipt Date: 20080728
  Transmission Date: 20090506
  Serious: No
  Sender: FDA-Public Use
  Company Number: US-AMGEN-KDL294127

PATIENT
  Sex: Female
  Weight: 75.8 kg

DRUGS (4)
  1. ENBREL [Suspect]
     Indication: RHEUMATOID ARTHRITIS
     Route: 058
     Dates: start: 20011201
  2. AZULFIDINE EN-TABS [Concomitant]
  3. ACTONEL [Concomitant]
     Route: 048
  4. CELEBREX [Concomitant]
     Route: 048

REACTIONS (2)
  - BRONCHITIS [None]
  - RHEUMATOID ARTHRITIS [None]
